FAERS Safety Report 7644023-8 (Version None)
Quarter: 2011Q3

REPORT INFORMATION
  Report Type: 
  Country: None (occurrence: None)
  Receive Date: 20110729
  Receipt Date: 20110726
  Transmission Date: 20111222
  Serious: Yes (Other)
  Sender: FDA-Public Use
  Company Number: US-PFIZER INC-2011169982

PATIENT
  Sex: Female

DRUGS (5)
  1. LYRICA [Suspect]
     Indication: RESTLESS LEGS SYNDROME
     Dosage: 75 MG, UNK
  2. BONIVA [Suspect]
     Dosage: UNK
  3. CLARITHROMYCIN [Suspect]
     Indication: LUNG INFECTION
     Dosage: UNK
  4. FOSAMAX [Suspect]
     Dosage: UNK
  5. PROVELLA-14 [Concomitant]
     Dosage: UNK

REACTIONS (6)
  - LUNG INFECTION [None]
  - BLOOD PRESSURE DECREASED [None]
  - DRUG DOSE OMISSION [None]
  - DYSPNOEA [None]
  - MALAISE [None]
  - PULMONARY HAEMORRHAGE [None]
